FAERS Safety Report 15939641 (Version 3)
Quarter: 2019Q3

REPORT INFORMATION
  Report Type: Spontaneous
  Country: US (occurrence: US)
  Receive Date: 20190208
  Receipt Date: 20190903
  Transmission Date: 20191004
  Serious: Yes (Disabling, Other)
  Sender: FDA-Public Use
  Company Number: US-ASTRAZENECA-2018SF34763

PATIENT
  Age: 53 Year
  Sex: Male
  Weight: 167.4 kg

DRUGS (43)
  1. NEXIUM [Suspect]
     Active Substance: ESOMEPRAZOLE MAGNESIUM
     Indication: GASTROOESOPHAGEAL REFLUX DISEASE
     Route: 048
     Dates: start: 20090427
  2. FUROSEMIDE. [Concomitant]
     Active Substance: FUROSEMIDE
  3. GENTAMICIN. [Concomitant]
     Active Substance: GENTAMICIN
  4. MECLIZINE [Concomitant]
     Active Substance: MECLIZINE HYDROCHLORIDE
  5. NIFEDIPINE. [Concomitant]
     Active Substance: NIFEDIPINE
  6. GENTAMICIN. [Concomitant]
     Active Substance: GENTAMICIN
  7. ASPIRIN. [Concomitant]
     Active Substance: ASPIRIN
  8. TERAZOSIN [Concomitant]
     Active Substance: TERAZOSIN HYDROCHLORIDE
  9. ACIPHEX [Suspect]
     Active Substance: RABEPRAZOLE SODIUM
     Indication: GASTROOESOPHAGEAL REFLUX DISEASE
     Route: 065
     Dates: start: 1995
  10. HYDROCORTISONE. [Concomitant]
     Active Substance: HYDROCORTISONE
  11. AZITHROMYCIN ANHYDROUS. [Concomitant]
     Active Substance: AZITHROMYCIN ANHYDROUS
  12. NIFEDIPINE. [Concomitant]
     Active Substance: NIFEDIPINE
  13. NEXIUM [Suspect]
     Active Substance: ESOMEPRAZOLE MAGNESIUM
     Indication: GASTROOESOPHAGEAL REFLUX DISEASE
     Dosage: GENERIC
     Route: 065
  14. AMOXICILLIN. [Concomitant]
     Active Substance: AMOXICILLIN
  15. SYNTHROID [Concomitant]
     Active Substance: LEVOTHYROXINE SODIUM
  16. NEXIUM [Suspect]
     Active Substance: ESOMEPRAZOLE MAGNESIUM
     Indication: GASTROOESOPHAGEAL REFLUX DISEASE
     Route: 048
     Dates: start: 1995
  17. PRILOSEC [Suspect]
     Active Substance: OMEPRAZOLE MAGNESIUM
     Indication: GASTROOESOPHAGEAL REFLUX DISEASE
     Route: 048
     Dates: start: 1995
  18. AMITRIPTYLINE [Concomitant]
     Active Substance: AMITRIPTYLINE
  19. AVELOX [Concomitant]
     Active Substance: MOXIFLOXACIN HYDROCHLORIDE
  20. HYDROCODONE [Concomitant]
     Active Substance: HYDROCODONE
  21. VYVANSE [Concomitant]
     Active Substance: LISDEXAMFETAMINE DIMESYLATE
  22. NEXIUM [Suspect]
     Active Substance: ESOMEPRAZOLE MAGNESIUM
     Indication: GASTROOESOPHAGEAL REFLUX DISEASE
     Dosage: 40.0MG UNKNOWN
     Route: 048
     Dates: start: 2003, end: 2009
  23. PRILOSEC [Suspect]
     Active Substance: OMEPRAZOLE MAGNESIUM
     Indication: GASTROOESOPHAGEAL REFLUX DISEASE
     Route: 048
     Dates: start: 20100429
  24. PRILOSEC [Suspect]
     Active Substance: OMEPRAZOLE MAGNESIUM
     Indication: GASTROOESOPHAGEAL REFLUX DISEASE
     Dosage: GENERIC
     Route: 065
     Dates: start: 2006
  25. LANTUS [Concomitant]
     Active Substance: INSULIN GLARGINE
  26. BENICAR [Concomitant]
     Active Substance: OLMESARTAN MEDOXOMIL
  27. TRAMADOL. [Concomitant]
     Active Substance: TRAMADOL
  28. PREDNISONE. [Concomitant]
     Active Substance: PREDNISONE
  29. TOPAMAX [Concomitant]
     Active Substance: TOPIRAMATE
  30. TRAMADOL. [Concomitant]
     Active Substance: TRAMADOL
  31. HYDROXYZINE [Concomitant]
     Active Substance: HYDROXYZINE HYDROCHLORIDE
  32. PROMETHAZINE [Concomitant]
     Active Substance: PROMETHAZINE HYDROCHLORIDE
  33. ACETAMINOPHEN. [Concomitant]
     Active Substance: ACETAMINOPHEN
  34. AMLODIPINE [Concomitant]
     Active Substance: AMLODIPINE BESYLATE
  35. NEXIUM 24HR [Suspect]
     Active Substance: ESOMEPRAZOLE MAGNESIUM
     Indication: GASTROOESOPHAGEAL REFLUX DISEASE
     Route: 048
  36. ACIPHEX [Suspect]
     Active Substance: RABEPRAZOLE SODIUM
     Indication: GASTROOESOPHAGEAL REFLUX DISEASE
     Route: 065
     Dates: start: 1996, end: 2003
  37. TERAZOSIN [Concomitant]
     Active Substance: TERAZOSIN HYDROCHLORIDE
  38. CEPHALEXIN. [Concomitant]
     Active Substance: CEPHALEXIN
  39. DOXYCYCLINE. [Concomitant]
     Active Substance: DOXYCYCLINE
  40. VITAMIN C [Concomitant]
     Active Substance: ASCORBIC ACID
  41. CYCLOBENZAPRINE. [Concomitant]
     Active Substance: CYCLOBENZAPRINE
  42. NITROSTAT [Concomitant]
     Active Substance: NITROGLYCERIN
  43. PROMETHAZINE [Concomitant]
     Active Substance: PROMETHAZINE HYDROCHLORIDE

REACTIONS (4)
  - End stage renal disease [Not Recovered/Not Resolved]
  - Chronic kidney disease [Not Recovered/Not Resolved]
  - Acute kidney injury [Unknown]
  - Renal failure [Not Recovered/Not Resolved]

NARRATIVE: CASE EVENT DATE: 2010
